FAERS Safety Report 6022450-2 (Version None)
Quarter: 2008Q4

REPORT INFORMATION
  Report Type: 
  Country: None (occurrence: None)
  Receive Date: 20081223
  Receipt Date: 20081215
  Transmission Date: 20090506
  Serious: Yes (Other)
  Sender: FDA-Public Use
  Company Number: 100#08#2008-06248

PATIENT
  Age: 81 Year
  Sex: Male

DRUGS (7)
  1. HYDROXYCARBAMIDE (HYDROXYCARBAMIDE) [Suspect]
     Indication: MYELOPROLIFERATIVE DISORDER
     Dosage: 500 MG TWICE A DAY
  2. IRON (IRON) [Concomitant]
  3. FOLIC ACID [Concomitant]
  4. SPIRONOLACTONE [Concomitant]
  5. FUROSEMIDE (FUROSEMIDE) [Concomitant]
  6. ALLOPURINOL [Concomitant]
  7. THEOPHYLLINE [Concomitant]

REACTIONS (5)
  - KERATOACANTHOMA [None]
  - NAIL PIGMENTATION [None]
  - SKIN HYPERPIGMENTATION [None]
  - SQUAMOUS CELL CARCINOMA [None]
  - ULCER [None]
